FAERS Safety Report 9092659 (Version 1)
Quarter: 2013Q1

REPORT INFORMATION
  Report Type: Spontaneous
  Country: US (occurrence: None)
  Receive Date: 20130213
  Receipt Date: 20130213
  Transmission Date: 20140127
  Serious: Yes (Other)
  Sender: FDA-Public Use
  Company Number: None

PATIENT
  Age: 30 Year
  Sex: Male
  Weight: 86.18 kg

DRUGS (2)
  1. BUPROPION [Suspect]
     Indication: DEPRESSION
  2. BUPROPION [Suspect]
     Indication: DEPRESSION

REACTIONS (8)
  - Product quality issue [None]
  - Product substitution issue [None]
  - Drug ineffective [None]
  - Feeling abnormal [None]
  - Mental disorder [None]
  - Tachyphrenia [None]
  - Thinking abnormal [None]
  - Depression suicidal [None]
